FAERS Safety Report 8436986-8 (Version None)
Quarter: 2012Q2

REPORT INFORMATION
  Report Type: 
  Country: None (occurrence: None)
  Receive Date: 20120614
  Receipt Date: 20120606
  Transmission Date: 20120825
  Serious: Yes (Death)
  Sender: FDA-Public Use
  Company Number: US-BRISTOL-MYERS SQUIBB COMPANY-16364754

PATIENT
  Age: 59 Year
  Sex: Female

DRUGS (4)
  1. MULTI-VITAMINS [Concomitant]
  2. HYDROCODONE [Concomitant]
  3. YERVOY [Suspect]
     Indication: MALIGNANT MELANOMA
     Route: 042
     Dates: start: 20110826
  4. PROMETHAZINE [Concomitant]

REACTIONS (1)
  - NEOPLASM MALIGNANT [None]
